FAERS Safety Report 14281695 (Version 1)
Quarter: 2017Q4

REPORT INFORMATION
  Report Type: Spontaneous
  Country: US (occurrence: US)
  Receive Date: 20171213
  Receipt Date: 20171213
  Transmission Date: 20180321
  Serious: Yes (Life-Threatening, Hospitalization)
  Sender: FDA-Public Use
  Company Number: US-ELI_LILLY_AND_COMPANY-US201712003862

PATIENT
  Sex: Male

DRUGS (2)
  1. HUMALOG [Suspect]
     Active Substance: INSULIN LISPRO
     Indication: TYPE 2 DIABETES MELLITUS
     Dosage: SLIDING SCALE WITH MEALS
     Route: 058
     Dates: start: 20161208
  2. LANTUS [Concomitant]
     Active Substance: INSULIN GLARGINE
     Indication: TYPE 2 DIABETES MELLITUS
     Dosage: 23 U, EACH MORNING
     Route: 065

REACTIONS (8)
  - Gait inability [Unknown]
  - Injection site bruising [Unknown]
  - Atrial fibrillation [Unknown]
  - Pneumonia [Unknown]
  - Malaise [Unknown]
  - Myocardial necrosis marker increased [Unknown]
  - Cellulitis [Unknown]
  - Bronchitis [Recovered/Resolved]
